FAERS Safety Report 20695483 (Version 3)
Quarter: 2023Q1

REPORT INFORMATION
  Report Type: Spontaneous
  Country: US (occurrence: US)
  Receive Date: 20220411
  Receipt Date: 20230111
  Transmission Date: 20230418
  Serious: No
  Sender: FDA-Public Use
  Company Number: US-CHEMOCENTRYX, INC.-2022USCCXI0036

PATIENT

DRUGS (2)
  1. TAVNEOS [Suspect]
     Active Substance: AVACOPAN
     Indication: Product used for unknown indication
     Dosage: 30 MG, 2X/DAY WITH FOOD
     Route: 048
     Dates: start: 20220110, end: 2022
  2. TAVNEOS [Suspect]
     Active Substance: AVACOPAN
     Dosage: 30 MG, 2X/DAY WITH FOOD
     Route: 048
     Dates: start: 2022

REACTIONS (2)
  - Therapeutic product effect incomplete [Unknown]
  - Product use issue [Not Recovered/Not Resolved]

NARRATIVE: CASE EVENT DATE: 20220101
